FAERS Safety Report 24232034 (Version 1)
Quarter: 2024Q3

REPORT INFORMATION
  Report Type: Spontaneous
  Country: US (occurrence: US)
  Receive Date: 20240821
  Receipt Date: 20240821
  Transmission Date: 20241016
  Serious: No
  Sender: PL DEVELOPMENTS
  Company Number: US-P+L Developments of Newyork Corporation-2160665

PATIENT
  Sex: Female

DRUGS (2)
  1. DOCOSANOL [Suspect]
     Active Substance: DOCOSANOL
     Indication: Product used for unknown indication
     Route: 065
     Dates: start: 2024
  2. DOCOSANOL [Suspect]
     Active Substance: DOCOSANOL
     Route: 065
     Dates: start: 2024

REACTIONS (1)
  - Product package associated injury [Unknown]

NARRATIVE: CASE EVENT DATE: 20240101
